FAERS Safety Report 12476152 (Version 2)
Quarter: 2016Q3

REPORT INFORMATION
  Report Type: Other
  Country: CN (occurrence: CN)
  Receive Date: 20160617
  Receipt Date: 20160708
  Transmission Date: 20161109
  Serious: Yes (Hospitalization)
  Sender: FDA-Public Use
  Company Number: CN-MERZ NORTH AMERICA, INC.-16MRZ-00373

PATIENT
  Age: 1 Year
  Sex: Female

DRUGS (1)
  1. ASCLERA [Suspect]
     Active Substance: POLIDOCANOL
     Dosage: INTERVENTIONAL SCLEROTHERAPY
     Route: 042

REACTIONS (8)
  - Ischaemia [Not Recovered/Not Resolved]
  - Temperature difference of extremities [Not Recovered/Not Resolved]
  - Pulse absent [Not Recovered/Not Resolved]
  - Pyrexia [Unknown]
  - Necrosis [Not Recovered/Not Resolved]
  - Peripheral embolism [Not Recovered/Not Resolved]
  - Ecchymosis [Not Recovered/Not Resolved]
  - Amputation [Unknown]
